FAERS Safety Report 19025526 (Version 1)
Quarter: 2021Q1

REPORT INFORMATION
  Report Type: Spontaneous
  Country: US (occurrence: US)
  Receive Date: 20210318
  Receipt Date: 20210318
  Transmission Date: 20210420
  Serious: Yes (Other)
  Sender: FDA-Public Use
  Company Number: US-CADILA HEALTHCARE LIMITED-US-ZYDUS-062719

PATIENT

DRUGS (2)
  1. AMBRISENTAN 10 MG TABLETS [Suspect]
     Active Substance: AMBRISENTAN
     Dosage: 10 MILLIGRAM
     Route: 048
     Dates: start: 20210205
  2. AMBRISENTAN 10 MG TABLETS [Suspect]
     Active Substance: AMBRISENTAN
     Indication: PULMONARY ARTERIAL HYPERTENSION
     Dosage: 10 MILLIGRAM, QD
     Route: 048
     Dates: end: 20210104

REACTIONS (2)
  - Exposure during pregnancy [None]
  - Abortion induced [Recovered/Resolved]

NARRATIVE: CASE EVENT DATE: 20210201
